FAERS Safety Report 19974457 (Version 2)
Quarter: 2021Q4

REPORT INFORMATION
  Report Type: Report from Study
  Country: CL (occurrence: CL)
  Receive Date: 20211020
  Receipt Date: 20211102
  Transmission Date: 20220303
  Serious: Yes (Other)
  Sender: FDA-Public Use
  Company Number: CL-NOVARTISPH-NVSC2021CL232986

PATIENT
  Age: 85 Year
  Sex: Female

DRUGS (2)
  1. FEMARA [Suspect]
     Active Substance: LETROZOLE
     Indication: Breast cancer
     Dosage: 2.5 MG, QD
     Route: 048
  2. FULVESTRANT [Concomitant]
     Active Substance: FULVESTRANT
     Indication: Product used for unknown indication
     Dosage: UNK
     Route: 065
     Dates: start: 20211025

REACTIONS (18)
  - Myocardial necrosis [Unknown]
  - Electrocardiogram repolarisation abnormality [Unknown]
  - Malignant neoplasm progression [Unknown]
  - Breast cancer [Unknown]
  - Myocardial infarction [Unknown]
  - Pleural thickening [Unknown]
  - Prothrombin level decreased [Unknown]
  - Blood bilirubin abnormal [Unknown]
  - Bilirubin conjugated decreased [Unknown]
  - Gamma-glutamyltransferase abnormal [Unknown]
  - Blood creatinine decreased [Unknown]
  - Bundle branch block right [Unknown]
  - QRS axis abnormal [Unknown]
  - Supraventricular extrasystoles [Unknown]
  - Red blood cell sedimentation rate increased [Unknown]
  - Electrolyte imbalance [Unknown]
  - Sinus arrhythmia [Unknown]
  - White blood cell count decreased [Unknown]

NARRATIVE: CASE EVENT DATE: 20211006
